FAERS Safety Report 20112525 (Version 1)
Quarter: 2021Q4

REPORT INFORMATION
  Report Type: Spontaneous
  Country: US (occurrence: US)
  Receive Date: 20211125
  Receipt Date: 20211125
  Transmission Date: 20220303
  Serious: No
  Sender: FDA-Public Use
  Company Number: US-BTGSP-US-BTGSP-21-0123

PATIENT
  Age: 60 Year
  Sex: Male

DRUGS (4)
  1. CROFAB [Suspect]
     Active Substance: CROTALIDAE POLYVALENT IMMUNE FAB (OVINE)
     Indication: Snake bite
     Dosage: 6 VIALS, INITIALLY
     Route: 065
     Dates: start: 20210928
  2. CROFAB [Suspect]
     Active Substance: CROTALIDAE POLYVALENT IMMUNE FAB (OVINE)
     Dosage: 2 VIALS, 5 H AFTER THE FIRST DOSE
     Route: 065
     Dates: start: 20210928
  3. CROFAB [Suspect]
     Active Substance: CROTALIDAE POLYVALENT IMMUNE FAB (OVINE)
     Dosage: 2 VIALS, 9 H AFTER THE SECOND DOSE
     Route: 065
     Dates: start: 20210928
  4. MORPHINE [Concomitant]
     Active Substance: MORPHINE
     Indication: Pain
     Dosage: UNK

REACTIONS (4)
  - Off label use [Unknown]
  - Underdose [Unknown]
  - Swelling [Unknown]
  - Condition aggravated [Unknown]
